FAERS Safety Report 4760074-5 (Version None)
Quarter: 2005Q3

REPORT INFORMATION
  Report Type: 
  Country: None (occurrence: None)
  Receive Date: 20050831
  Receipt Date: 20050815
  Transmission Date: 20060218
  Serious: Yes (Other)
  Sender: FDA-Public Use
  Company Number: US_0508120847

PATIENT
  Sex: Female

DRUGS (4)
  1. PROZAC [Suspect]
     Dosage: 20 MG DAY
     Dates: start: 20010801
  2. WELLUTRIN SR (BUPROPION) [Concomitant]
  3. REMERON [Concomitant]
  4. RITALIN [Concomitant]

REACTIONS (4)
  - CONVULSION [None]
  - DEPRESSION [None]
  - FATIGUE [None]
  - GRAND MAL CONVULSION [None]
